FAERS Safety Report 9210063 (Version 1)
Quarter: 2012Q4

REPORT INFORMATION
  Report Type: 
  Country: JP (occurrence: JP)
  Receive Date: 20120903
  Receipt Date: 20120903
  Transmission Date: 20130627
  Serious: Yes (Hospitalization)
  Sender: FDA-Public Use
  Company Number: PHHY2012JP066389

PATIENT
  Age: 72 Year
  Sex: Male

DRUGS (2)
  1. NEORAL [Suspect]
     Indication: AUTOIMMUNE HEPATITIS
     Dosage: 150 mg, UNK
     Route: 048
     Dates: start: 20120725
  2. NEORAL [Suspect]
     Route: 048

REACTIONS (1)
  - Drug eruption [Recovering/Resolving]
